FAERS Safety Report 14375853 (Version 4)
Quarter: 2018Q4

REPORT INFORMATION
  Report Type: Spontaneous
  Country: US (occurrence: US)
  Receive Date: 20180111
  Receipt Date: 20181201
  Transmission Date: 20190204
  Serious: No
  Sender: FDA-Public Use
  Company Number: US-PFIZER INC-2018006734

PATIENT
  Age: 58 Year
  Sex: Female
  Weight: 76.64 kg

DRUGS (3)
  1. DOCETAXEL. [Suspect]
     Active Substance: DOCETAXEL
     Indication: BREAST CANCER
     Dosage: 136 MG, CYCLIC (EVERY THREE WEEKS)
     Dates: start: 20110225, end: 20110610
  2. TAXOTERE [Suspect]
     Active Substance: DOCETAXEL
     Indication: BREAST CANCER
     Dosage: 136 MG, EVERY 3 WEEKS (6 CYCLES)
     Dates: start: 20110225, end: 20110610
  3. PARAPLATIN [Concomitant]
     Active Substance: CARBOPLATIN
     Indication: CHEMOTHERAPY
     Dosage: 806 MG, UNK

REACTIONS (5)
  - Hair disorder [Unknown]
  - Hair texture abnormal [Unknown]
  - Hair colour changes [Unknown]
  - Alopecia [Unknown]
  - Madarosis [Unknown]

NARRATIVE: CASE EVENT DATE: 20110318
